FAERS Safety Report 23941089 (Version 1)
Quarter: 2024Q2

REPORT INFORMATION
  Report Type: Spontaneous
  Country: US (occurrence: None)
  Receive Date: 20240604
  Receipt Date: 20240604
  Transmission Date: 20240715
  Serious: Yes (Hospitalization)
  Sender: FDA-Public Use
  Company Number: None

PATIENT

DRUGS (2)
  1. MYXREDLIN [Suspect]
     Active Substance: INSULIN HUMAN
  2. CARDENE [Suspect]
     Active Substance: NICARDIPINE HYDROCHLORIDE

REACTIONS (6)
  - Product label confusion [None]
  - Wrong product stored [None]
  - Wrong product administered [None]
  - Product packaging confusion [None]
  - Wrong technique in product usage process [None]
  - Product distribution issue [None]
